FAERS Safety Report 24040154 (Version 1)
Quarter: 2024Q3

REPORT INFORMATION
  Report Type: Report from Study
  Country: US (occurrence: US)
  Receive Date: 20240702
  Receipt Date: 20240702
  Transmission Date: 20241017
  Serious: Yes (Other)
  Sender: ABBVIE
  Company Number: US-ABBVIE-5821515

PATIENT
  Sex: Female

DRUGS (1)
  1. RINVOQ [Suspect]
     Active Substance: UPADACITINIB
     Indication: Product used for unknown indication
     Route: 048
     Dates: start: 20231028

REACTIONS (6)
  - Renal disorder [Recovering/Resolving]
  - Cholelithiasis [Recovering/Resolving]
  - Ovarian cyst [Recovering/Resolving]
  - Nephrolithiasis [Recovering/Resolving]
  - Bone disorder [Recovering/Resolving]
  - Pain [Unknown]
